FAERS Safety Report 24387864 (Version 2)
Quarter: 2024Q4

REPORT INFORMATION
  Report Type: Spontaneous
  Country: US (occurrence: US)
  Receive Date: 20241002
  Receipt Date: 20241231
  Transmission Date: 20250115
  Serious: No
  Sender: GERON CORP
  Company Number: US-GERON CORPORATION-US-GER-24-000079

PATIENT

DRUGS (2)
  1. RYTELO [Suspect]
     Active Substance: IMETELSTAT SODIUM
     Indication: Product used for unknown indication
     Dosage: UNK, UNK
     Route: 065
  2. RYTELO [Suspect]
     Active Substance: IMETELSTAT SODIUM
     Dosage: UNK, UNK
     Route: 065

REACTIONS (1)
  - Intercepted product preparation error [Unknown]

NARRATIVE: CASE EVENT DATE: 20240801
